FAERS Safety Report 13427868 (Version 1)
Quarter: 2017Q2

REPORT INFORMATION
  Report Type: Spontaneous
  Country: US (occurrence: US)
  Receive Date: 20170411
  Receipt Date: 20170411
  Transmission Date: 20170830
  Serious: No
  Sender: FDA-Public Use
  Company Number: US-ALK ABELLO INC-1065277

PATIENT
  Sex: Female

DRUGS (1)
  1. VARIOUS UNSPECIFIED ALK ALLERGEN EXTRACTS [Suspect]
     Active Substance: ALLERGENIC EXTRACTS

REACTIONS (1)
  - Injection site hypoaesthesia [None]
